FAERS Safety Report 5292035-4 (Version None)
Quarter: 2007Q2

REPORT INFORMATION
  Report Type: 
  Country: None (occurrence: None)
  Receive Date: 20070403
  Receipt Date: 20070321
  Transmission Date: 20071010
  Serious: Yes (Other)
  Sender: FDA-Public Use
  Company Number: T200700180

PATIENT
  Age: 74 Year
  Sex: Male

DRUGS (2)
  1. ULTRA-TECHNEKOW [Suspect]
     Indication: COMPUTERISED TOMOGRAM
     Dosage: 32.4 MCI, SINGLE, INTRAVENOUS
     Route: 042
     Dates: start: 20051116, end: 20051116
  2. ULTRA-TECHNEKOW [Suspect]
     Indication: RADIOISOTOPE SCAN
     Dosage: 32.4 MCI, SINGLE, INTRAVENOUS
     Route: 042
     Dates: start: 20051116, end: 20051116

REACTIONS (10)
  - ANEURYSM [None]
  - CARDIAC OPERATION [None]
  - CHILLS [None]
  - LUNG NEOPLASM MALIGNANT [None]
  - LUNG OPERATION [None]
  - PERIPHERAL COLDNESS [None]
  - PHARMACEUTICAL PRODUCT COMPLAINT [None]
  - PYREXIA [None]
  - RASH [None]
  - VOMITING [None]
